FAERS Safety Report 4281991-9 (Version None)
Quarter: 2004Q1

REPORT INFORMATION
  Report Type: 
  Country: None (occurrence: None)
  Receive Date: 20040130
  Receipt Date: 20031230
  Transmission Date: 20041129
  Serious: Yes (Death, Hospitalization, Other)
  Sender: FDA-Public Use
  Company Number: 200320809US

PATIENT
  Sex: Female
  Weight: 66 kg

DRUGS (10)
  1. TAXOTERE [Suspect]
     Indication: NON-SMALL CELL LUNG CANCER
     Route: 042
     Dates: start: 20030827, end: 20031203
  2. GEMCITABINE [Suspect]
     Indication: NON-SMALL CELL LUNG CANCER
     Route: 042
     Dates: start: 20030827, end: 20031203
  3. SSRI [Concomitant]
     Dates: end: 20031220
  4. FERROUS SULFATE TAB [Concomitant]
     Dates: end: 20031220
  5. NEXIUM [Concomitant]
     Dates: end: 20031220
  6. LOVENOX [Concomitant]
     Indication: DEEP VEIN THROMBOSIS
     Dates: end: 20031215
  7. LIPITOR [Concomitant]
     Dates: end: 20031201
  8. NORVASC [Concomitant]
     Dates: end: 20031220
  9. TOPROL-XL [Concomitant]
     Dates: end: 20031220
  10. FOSAMAX [Concomitant]
     Dates: end: 20031220

REACTIONS (15)
  - BLOOD GLUCOSE INCREASED [None]
  - COLLAPSE OF LUNG [None]
  - DYSPNOEA [None]
  - HEART RATE INCREASED [None]
  - LUNG NEOPLASM [None]
  - MALIGNANT NEOPLASM PROGRESSION [None]
  - METASTASIS [None]
  - MYOCARDIAL ISCHAEMIA [None]
  - NON-SMALL CELL LUNG CANCER [None]
  - PLEURAL EFFUSION [None]
  - PNEUMOTHORAX [None]
  - PULMONARY EMBOLISM [None]
  - RESPIRATORY FAILURE [None]
  - SINUS TACHYCARDIA [None]
  - WHITE BLOOD CELL COUNT INCREASED [None]
